FAERS Safety Report 12065721 (Version 1)
Quarter: 2016Q1

REPORT INFORMATION
  Report Type: Spontaneous
  Country: US (occurrence: None)
  Receive Date: 20160210
  Receipt Date: 20160210
  Transmission Date: 20160526
  Serious: Yes (Disabling)
  Sender: FDA-Public Use
  Company Number: None

PATIENT
  Age: 67 Year
  Sex: Female
  Weight: 58.97 kg

DRUGS (6)
  1. SYNTHROID [Concomitant]
     Active Substance: LEVOTHYROXINE SODIUM
  2. WATER PILLS/TRIAMTERENE [Concomitant]
  3. LORAZEPAM. [Concomitant]
     Active Substance: LORAZEPAM
  4. ANASTROZOLE. [Concomitant]
     Active Substance: ANASTROZOLE
  5. CLONIDINE. [Concomitant]
     Active Substance: CLONIDINE
  6. EFFEXOR XR [Suspect]
     Active Substance: VENLAFAXINE HYDROCHLORIDE
     Indication: DEPRESSION
     Route: 048
     Dates: start: 201001, end: 201508

REACTIONS (14)
  - Confusional state [None]
  - Anxiety [None]
  - Eye injury [None]
  - Insomnia [None]
  - Condition aggravated [None]
  - Depression [None]
  - Patella fracture [None]
  - Chromatopsia [None]
  - Head injury [None]
  - Abnormal dreams [None]
  - Fall [None]
  - Headache [None]
  - Eye haemorrhage [None]
  - Vision blurred [None]
